FAERS Safety Report 4808693-1 (Version None)
Quarter: 2005Q4

REPORT INFORMATION
  Report Type: 
  Country: None (occurrence: None)
  Receive Date: 20051021
  Receipt Date: 20011108
  Transmission Date: 20060501
  Serious: Yes (Hospitalization)
  Sender: FDA-Public Use
  Company Number: DE_011107269

PATIENT
  Age: 76 Year
  Sex: Male

DRUGS (2)
  1. ZYPREXA [Suspect]
     Indication: RESTLESSNESS
     Dosage: 2.5 MG/DAY
     Dates: start: 20010328, end: 20011102
  2. MORPHINE [Concomitant]

REACTIONS (3)
  - PALLOR [None]
  - PLATELET COUNT DECREASED [None]
  - RED BLOOD CELL COUNT DECREASED [None]
